FAERS Safety Report 11802369 (Version 1)
Quarter: 2015Q4

REPORT INFORMATION
  Report Type: Spontaneous
  Country: US (occurrence: None)
  Receive Date: 20151203
  Receipt Date: 20151203
  Transmission Date: 20160305
  Serious: Yes (Other)
  Sender: FDA-Public Use
  Company Number: None

PATIENT
  Age: 46 Year

DRUGS (11)
  1. TRAMADOL. [Concomitant]
     Active Substance: TRAMADOL
  2. CYMBALTA [Suspect]
     Active Substance: DULOXETINE HYDROCHLORIDE
     Indication: DEPRESSION
     Dosage: 2 PILLS A DAY TWICE DAILY
     Route: 048
  3. BIOTIN [Concomitant]
     Active Substance: BIOTIN
  4. CYMBALTA [Suspect]
     Active Substance: DULOXETINE HYDROCHLORIDE
     Indication: FIBROMYALGIA
     Dosage: 2 PILLS A DAY TWICE DAILY
     Route: 048
  5. TYLENOL [Concomitant]
     Active Substance: ACETAMINOPHEN
  6. IBUPROPHEN [Concomitant]
     Active Substance: IBUPROFEN
  7. EQUATE SINUS EQUAL TO CLARITAN [Concomitant]
  8. CYMBALTA [Suspect]
     Active Substance: DULOXETINE HYDROCHLORIDE
     Indication: ANXIETY
     Dosage: 2 PILLS A DAY TWICE DAILY
     Route: 048
  9. TOPAMAX [Concomitant]
     Active Substance: TOPIRAMATE
  10. TIZANADINE [Concomitant]
  11. EXCEDRIN [Concomitant]
     Active Substance: ACETAMINOPHEN\ASPIRIN\CAFFEINE

REACTIONS (9)
  - Skin exfoliation [None]
  - Dizziness [None]
  - Depression [None]
  - Impaired healing [None]
  - Eye pain [None]
  - Confusional state [None]
  - Increased tendency to bruise [None]
  - Urine output increased [None]
  - Drug hypersensitivity [None]

NARRATIVE: CASE EVENT DATE: 20151202
